FAERS Safety Report 19678845 (Version 1)
Quarter: 2021Q3

REPORT INFORMATION
  Report Type: Spontaneous
  Country: US (occurrence: US)
  Receive Date: 20210809
  Receipt Date: 20210809
  Transmission Date: 20211014
  Serious: Yes (Life-Threatening, Hospitalization)
  Sender: FDA-Public Use
  Company Number: US-MYLANLABS-2021M1049318

PATIENT
  Age: 45 Year
  Sex: Male

DRUGS (5)
  1. NOREPINEPHRINE. [Suspect]
     Active Substance: NOREPINEPHRINE
     Indication: DISTRIBUTIVE SHOCK
     Dosage: ESCALATING DOSES
     Route: 065
  2. EPINEPHRINE. [Suspect]
     Active Substance: EPINEPHRINE
     Indication: DISTRIBUTIVE SHOCK
     Dosage: ESCALATING DOSES
     Route: 065
  3. VASOPRESSIN. [Suspect]
     Active Substance: VASOPRESSIN
     Indication: DISTRIBUTIVE SHOCK
     Dosage: ESCALATING DOSES
     Route: 065
  4. DOBUTAMINE [Suspect]
     Active Substance: DOBUTAMINE HYDROCHLORIDE
     Indication: DISTRIBUTIVE SHOCK
     Dosage: ESCALATING DOSES
     Route: 065
  5. MILRINONE [Suspect]
     Active Substance: MILRINONE
     Indication: DISTRIBUTIVE SHOCK
     Dosage: ESCALATING DOSES
     Route: 065

REACTIONS (1)
  - Drug ineffective [Unknown]
